FAERS Safety Report 17354876 (Version 1)
Quarter: 2020Q1

REPORT INFORMATION
  Report Type: Spontaneous
  Country: US (occurrence: US)
  Receive Date: 20200116
  Receipt Date: 20200116
  Transmission Date: 20200409
  Serious: No
  Sender: FDA-Public Use
  Company Number: None

PATIENT
  Age: 62 Year
  Sex: Male

DRUGS (1)
  1. VOSEVI [Suspect]
     Active Substance: SOFOSBUVIR\VELPATASVIR\VOXILAPREVIR
     Indication: HEPATITIS C
     Route: 048
     Dates: start: 201912

REACTIONS (5)
  - Bronchitis [None]
  - Fatigue [None]
  - Cough [None]
  - Headache [None]
  - Sinus disorder [None]

NARRATIVE: CASE EVENT DATE: 20200116
